FAERS Safety Report 7711550-4 (Version None)
Quarter: 2011Q3

REPORT INFORMATION
  Report Type: 
  Country: None (occurrence: None)
  Receive Date: 20110826
  Receipt Date: 20110822
  Transmission Date: 20111222
  Serious: Yes (Other)
  Sender: FDA-Public Use
  Company Number: US-JNJFOC-20110702508

PATIENT
  Sex: Female
  Weight: 78.93 kg

DRUGS (6)
  1. ARICEPT [Concomitant]
     Route: 048
  2. UNSPECIFIED MEDICATION FOR HYPOTHYROIDISM [Concomitant]
     Indication: HYPOTHYROIDISM
     Route: 048
  3. METHOTREXATE [Concomitant]
     Indication: ARTHRITIS
     Route: 058
  4. SOMA [Concomitant]
     Indication: MYALGIA
     Route: 048
  5. REMICADE [Suspect]
     Indication: PSORIATIC ARTHROPATHY
     Route: 042
     Dates: start: 20100101, end: 20110711
  6. OXYCODONE HCL [Concomitant]
     Indication: PAIN
     Route: 048

REACTIONS (7)
  - WEIGHT DECREASED [None]
  - VOMITING [None]
  - DRUG INEFFECTIVE [None]
  - LOSS OF CONSCIOUSNESS [None]
  - SWELLING [None]
  - PSORIASIS [None]
  - PAIN [None]
